FAERS Safety Report 20378831 (Version 1)
Quarter: 2022Q1

REPORT INFORMATION
  Report Type: Spontaneous
  Country: CN (occurrence: CN)
  Receive Date: 20220126
  Receipt Date: 20220126
  Transmission Date: 20220424
  Serious: Yes (Other)
  Sender: FDA-Public Use
  Company Number: CN-PFIZER INC-202200073179

PATIENT
  Age: 75 Year
  Sex: Male
  Weight: 75 kg

DRUGS (9)
  1. CEFOPERAZONE SODIUM\SULBACTAM SODIUM [Suspect]
     Active Substance: CEFOPERAZONE SODIUM\SULBACTAM SODIUM
     Indication: Pneumonia
     Dosage: 2.000 G, 2X/DAY
     Route: 041
     Dates: start: 20211112, end: 20211114
  2. ZITHROMAX [Suspect]
     Active Substance: AZITHROMYCIN DIHYDRATE
     Indication: Pneumonia
     Dosage: 0.500 G, 1X/DAY
     Route: 041
     Dates: start: 20211112, end: 20211114
  3. BISOPROLOL FUMARATE [Suspect]
     Active Substance: BISOPROLOL FUMARATE
     Indication: Heart rate abnormal
     Dosage: 5.000 MG, 1X/DAY
     Route: 048
     Dates: start: 20211112, end: 20211114
  4. LOSEC [Suspect]
     Active Substance: OMEPRAZOLE
     Indication: Therapeutic procedure
     Dosage: 40.000 MG, 1X/DAY
     Route: 041
     Dates: start: 20211110, end: 20211114
  5. ENOXAPARIN SODIUM [Concomitant]
     Active Substance: ENOXAPARIN SODIUM
     Indication: Coagulopathy
     Dosage: 0.400 ML, 2X/DAY
     Route: 058
     Dates: start: 20211109, end: 20211114
  6. ZHENG CHANG SHENG [Concomitant]
     Indication: Dysbiosis
     Dosage: 0.250 G, 3X/DAY
     Route: 048
     Dates: start: 20211110, end: 20211114
  7. VITAMIN B6 [Concomitant]
     Active Substance: PYRIDOXINE HYDROCHLORIDE
     Indication: Fluid replacement
     Dosage: 2.000 ML, 1X/DAY
     Route: 041
     Dates: start: 20211110, end: 20211114
  8. VITAMIN C [Concomitant]
     Active Substance: ASCORBIC ACID
     Indication: Fluid replacement
     Dosage: 2.000 G, 1X/DAY
     Route: 041
     Dates: start: 20211110, end: 20211114
  9. RUI XIAN [Concomitant]
     Indication: Nutritional supplementation
     Dosage: 1000.000 ML, 1X/DAY
     Route: 045
     Dates: start: 20211112, end: 20211114

REACTIONS (3)
  - Drug eruption [Recovering/Resolving]
  - Rash erythematous [Recovering/Resolving]
  - Pruritus [Recovering/Resolving]

NARRATIVE: CASE EVENT DATE: 20211114
